FAERS Safety Report 6282141-X (Version None)
Quarter: 2009Q3

REPORT INFORMATION
  Report Type: 
  Country: None (occurrence: None)
  Receive Date: 20090724
  Receipt Date: 20090717
  Transmission Date: 20100115
  Serious: Yes (Hospitalization)
  Sender: FDA-Public Use
  Company Number: CA-CELGENEUS-028-C5013-09060984

PATIENT
  Sex: Female
  Weight: 64 kg

DRUGS (30)
  1. THALOMID [Suspect]
     Indication: MULTIPLE MYELOMA
     Route: 048
     Dates: start: 20090610, end: 20090611
  2. THALOMID [Suspect]
     Route: 048
     Dates: start: 20090702
  3. MELPHALAN [Suspect]
     Indication: MULTIPLE MYELOMA
     Route: 065
     Dates: start: 20090610, end: 20090612
  4. PREDNISONE [Suspect]
     Indication: MULTIPLE MYELOMA
     Route: 065
     Dates: start: 20090610, end: 20090612
  5. GAVISCON [Concomitant]
     Indication: PEPTIC ULCER
     Route: 048
     Dates: start: 20090505
  6. RATIO-MAGNESIUM [Concomitant]
     Route: 048
     Dates: start: 20060518
  7. NITRO-DUR [Concomitant]
     Indication: ANGINA PECTORIS
     Dosage: 0.4 MG/HR
     Route: 062
     Dates: start: 20010914
  8. NITRO-DUR [Concomitant]
     Dosage: 0.8 MG/HR
     Route: 062
     Dates: start: 20010914
  9. CLONAZEPAM [Concomitant]
     Indication: INSOMNIA
     Route: 048
     Dates: start: 20020412
  10. SYNTHROID [Concomitant]
     Indication: HYPOTHYROIDISM
     Route: 048
     Dates: start: 20030206
  11. EPREX [Concomitant]
     Dosage: 40,000 UI
     Route: 058
     Dates: start: 20050922, end: 20090528
  12. IMODIUM [Concomitant]
     Route: 048
     Dates: start: 20050505
  13. TYLENOL [Concomitant]
     Indication: PAIN
     Route: 048
     Dates: start: 20060101
  14. VITAMIN B-12 [Concomitant]
     Route: 058
     Dates: start: 20040429
  15. ENALAPRIL MALEATE [Concomitant]
     Indication: HYPERTENSION
     Route: 048
     Dates: start: 19961015
  16. METFORMIN HCL [Concomitant]
     Route: 048
     Dates: start: 20011026
  17. LIPIDIL [Concomitant]
     Route: 048
     Dates: start: 19980707
  18. OMEPRAZOLE [Concomitant]
     Indication: PEPTIC ULCER
     Route: 048
     Dates: start: 20011026, end: 20090603
  19. CARBOCAL [Concomitant]
     Indication: OSTEOPOROSIS
     Dosage: 500MG/400 UI
     Route: 048
     Dates: start: 20051215
  20. TOLBUTAMIDE [Concomitant]
     Route: 048
     Dates: start: 20030318
  21. ATENOLOL [Concomitant]
     Indication: HYPERTENSION
     Route: 048
     Dates: start: 19970320
  22. NORVASC [Concomitant]
     Indication: HYPERTENSION
     Route: 048
     Dates: start: 20031212, end: 20090610
  23. NORVASC [Concomitant]
     Route: 048
     Dates: start: 20090611
  24. APO-QUININE [Concomitant]
     Route: 048
     Dates: start: 19950803
  25. NITRO-SPRAY [Concomitant]
     Indication: ANGINA PECTORIS
     Route: 065
     Dates: start: 19960101
  26. ROBAXACET [Concomitant]
     Indication: BACK PAIN
     Dosage: 325-400 MG
     Route: 048
     Dates: start: 20040101
  27. VITALUX [Concomitant]
     Indication: MACULAR DEGENERATION
     Route: 048
     Dates: start: 20090603
  28. PAMIDRONATE DISODIUM [Concomitant]
     Indication: DRUG USE FOR UNKNOWN INDICATION
     Route: 051
     Dates: start: 20090611
  29. ASPIRIN [Concomitant]
     Indication: CARDIOVASCULAR EVENT PROPHYLAXIS
     Route: 048
     Dates: start: 20090603
  30. PANTOPRAZOLE SODIUM [Concomitant]
     Indication: PEPTIC ULCER
     Route: 048
     Dates: start: 20090603

REACTIONS (2)
  - ACUTE CORONARY SYNDROME [None]
  - PULMONARY OEDEMA [None]
